FAERS Safety Report 18507069 (Version 1)
Quarter: 2020Q4

REPORT INFORMATION
  Report Type: Spontaneous
  Country: US (occurrence: US)
  Receive Date: 20201115
  Receipt Date: 20201115
  Transmission Date: 20210114
  Serious: Yes (Other)
  Sender: FDA-Public Use
  Company Number: None

PATIENT
  Age: 25 Year
  Sex: Female
  Weight: 69.75 kg

DRUGS (3)
  1. IRON [Concomitant]
     Active Substance: IRON
  2. WAL FEX 24 HOUR ALLERGY [Suspect]
     Active Substance: FEXOFENADINE HYDROCHLORIDE
     Indication: MULTIPLE ALLERGIES
     Dosage: ?          QUANTITY:1 CAPSULE(S);?
     Route: 048
     Dates: start: 20201031, end: 20201031
  3. PROBIOTICS [Concomitant]
     Active Substance: PROBIOTICS NOS

REACTIONS (10)
  - Feeling hot [None]
  - Feeling abnormal [None]
  - Hypopnoea [None]
  - Tremor [None]
  - Throat tightness [None]
  - Sinus disorder [None]
  - Defaecation urgency [None]
  - Erythema [None]
  - Paranasal sinus discomfort [None]
  - Muscle spasms [None]

NARRATIVE: CASE EVENT DATE: 20201031
